FAERS Safety Report 13232823 (Version 2)
Quarter: 2017Q1

REPORT INFORMATION
  Report Type: Spontaneous
  Country: DE (occurrence: DE)
  Receive Date: 20170214
  Receipt Date: 20170315
  Transmission Date: 20170428
  Serious: Yes (Other)
  Sender: FDA-Public Use
  Company Number: DE-ABBVIE-17P-062-1872613-00

PATIENT
  Age: 39 Year
  Sex: Female
  Weight: 90 kg

DRUGS (6)
  1. CELEBREX [Concomitant]
     Active Substance: CELECOXIB
     Dosage: VERY RARELY WHEN NEEDED
  2. BISOPROLOL [Concomitant]
     Active Substance: BISOPROLOL
     Indication: HYPERTENSION
     Route: 048
     Dates: start: 201701
  3. TEMISARTAN [Concomitant]
     Indication: HYPERTENSION
     Route: 048
     Dates: start: 201701
  4. CELEBREX [Concomitant]
     Active Substance: CELECOXIB
     Indication: PRODUCT USED FOR UNKNOWN INDICATION
  5. HUMIRA [Suspect]
     Active Substance: ADALIMUMAB
     Indication: ANKYLOSING SPONDYLITIS
     Route: 058
     Dates: start: 201208, end: 2015
  6. CIMZIA [Suspect]
     Active Substance: CERTOLIZUMAB PEGOL
     Indication: ANKYLOSING SPONDYLITIS
     Route: 058
     Dates: start: 201508, end: 201701

REACTIONS (10)
  - Ventricular hypokinesia [Unknown]
  - Cardiomyopathy [Unknown]
  - Viral infection [Unknown]
  - Vertigo [Unknown]
  - Ventricular extrasystoles [Recovered/Resolved]
  - Ventricular arrhythmia [Unknown]
  - Cardiac failure [Unknown]
  - Left ventricular dilatation [Unknown]
  - Ejection fraction decreased [Unknown]
  - Drug ineffective [Recovering/Resolving]

NARRATIVE: CASE EVENT DATE: 2016
